FAERS Safety Report 23962565 (Version 1)
Quarter: 2024Q2

REPORT INFORMATION
  Report Type: Spontaneous
  Country: US (occurrence: US)
  Receive Date: 20240611
  Receipt Date: 20240611
  Transmission Date: 20240716
  Serious: Yes (Other)
  Sender: FDA-Public Use
  Company Number: US-ABP-000048

PATIENT
  Age: 52 Year
  Sex: Male

DRUGS (13)
  1. ATOVAQUONE [Suspect]
     Active Substance: ATOVAQUONE
     Indication: Babesiosis
     Dosage: IN EARLY NOVEMBER 2022, PATIENT WAS TREATED WITH ATOVAQUONE AND AZITHROMYCIN
     Route: 065
     Dates: start: 202211
  2. ATOVAQUONE [Suspect]
     Active Substance: ATOVAQUONE
     Indication: Disease recurrence
     Dosage: IN EARLY NOVEMBER 2022, PATIENT WAS TREATED WITH ATOVAQUONE AND AZITHROMYCIN
     Route: 065
     Dates: start: 202211
  3. AZITHROMYCIN [Suspect]
     Active Substance: AZITHROMYCIN
     Indication: Babesiosis
     Dosage: IN EARLY NOVEMBER 2022, PATIENT WAS TREATED WITH ATOVAQUONE AND AZITHROMYCIN
     Route: 065
     Dates: start: 202211
  4. AZITHROMYCIN [Suspect]
     Active Substance: AZITHROMYCIN
     Indication: Disease recurrence
     Dosage: IN EARLY NOVEMBER 2022, PATIENT WAS TREATED WITH ATOVAQUONE AND AZITHROMYCIN
     Route: 065
     Dates: start: 202211
  5. RITUXIMAB [Suspect]
     Active Substance: RITUXIMAB
     Indication: Follicular lymphoma
     Route: 065
  6. CYCLOPHOSPHAMIDE [Suspect]
     Active Substance: CYCLOPHOSPHAMIDE
     Indication: Follicular lymphoma
     Route: 065
  7. DOXORUBICIN [Suspect]
     Active Substance: DOXORUBICIN
     Indication: Follicular lymphoma
     Route: 065
  8. VINCRISTINE [Suspect]
     Active Substance: VINCRISTINE
     Indication: Follicular lymphoma
     Route: 065
  9. PREDNISONE [Suspect]
     Active Substance: PREDNISONE
     Indication: Follicular lymphoma
     Route: 065
  10. CLINDAMYCIN [Concomitant]
     Active Substance: CLINDAMYCIN
     Indication: Babesiosis
     Route: 065
  11. CLINDAMYCIN [Concomitant]
     Active Substance: CLINDAMYCIN
     Indication: Disease recurrence
     Route: 065
  12. QUININE [Concomitant]
     Active Substance: QUININE
     Indication: Babesiosis
     Route: 065
  13. QUININE [Concomitant]
     Active Substance: QUININE
     Indication: Disease recurrence
     Route: 065

REACTIONS (3)
  - Babesiosis [Recovered/Resolved]
  - Disease recurrence [Recovered/Resolved]
  - Drug resistance [Not Recovered/Not Resolved]
